FAERS Safety Report 9212365 (Version 1)
Quarter: 2013Q2

REPORT INFORMATION
  Report Type: Spontaneous
  Country: US (occurrence: US)
  Receive Date: 20130404
  Receipt Date: 20130404
  Transmission Date: 20140414
  Serious: No
  Sender: FDA-Public Use
  Company Number: US-009507513-1304USA001107

PATIENT
  Age: 49 Year
  Sex: Female

DRUGS (3)
  1. PEGINTRON [Suspect]
     Indication: HEPATITIS C
     Dosage: 120 MICROGRAM, ONCE WEEKLY
     Route: 058
     Dates: start: 20130228
  2. TELAPREVIR [Suspect]
  3. RIBAPAK [Suspect]

REACTIONS (3)
  - Dry mouth [Unknown]
  - Nausea [Unknown]
  - Rash [Unknown]
